FAERS Safety Report 11358860 (Version 1)
Quarter: 2015Q3

REPORT INFORMATION
  Report Type: Spontaneous
  Country: US (occurrence: None)
  Receive Date: 20150710
  Receipt Date: 20150710
  Transmission Date: 20151125
  Serious: Yes (Other)
  Sender: FDA-Public Use
  Company Number: 1566779

PATIENT
  Sex: Male
  Weight: 77 kg

DRUGS (3)
  1. METHYLPREDNISOLONE (METHYLPREDNISOLONE) (TABLET) [Suspect]
     Active Substance: METHYLPREDNISOLONE
     Indication: RENAL TRANSPLANT
     Route: 048
     Dates: start: 200406
  2. RAPAMUNE [Suspect]
     Active Substance: SIROLIMUS
     Indication: RENAL TRANSPLANT
     Route: 048
     Dates: start: 200406
  3. CELLCEPT [Suspect]
     Active Substance: MYCOPHENOLATE MOFETIL\MYCOPHENOLATE MOFETIL HYDROCHLORIDE
     Indication: RENAL TRANSPLANT
     Route: 048
     Dates: start: 200406

REACTIONS (6)
  - Skin disorder [None]
  - Skin cancer [None]
  - Contusion [None]
  - Laceration [None]
  - Petechiae [None]
  - Skin atrophy [None]
